FAERS Safety Report 9087236 (Version 2)
Quarter: 2013Q1

REPORT INFORMATION
  Report Type: Spontaneous
  Country: US (occurrence: US)
  Receive Date: 20130131
  Receipt Date: 20130221
  Transmission Date: 20140127
  Serious: Yes (Hospitalization)
  Sender: FDA-Public Use
  Company Number: US-PFIZER INC-2013038439

PATIENT
  Age: 17 Month
  Sex: Male
  Weight: 59.4 kg

DRUGS (1)
  1. INFANT ADVIL CONCENTRATED DROPS [Suspect]
     Indication: PYREXIA
     Dosage: 1.25 MG, 2X/DAY
     Dates: start: 201212

REACTIONS (7)
  - Haematemesis [Recovering/Resolving]
  - Lower respiratory tract infection [Recovering/Resolving]
  - Gastric ulcer [Recovering/Resolving]
  - Gastric haemorrhage [Recovering/Resolving]
  - Gastric disorder [Recovering/Resolving]
  - Pain [Recovering/Resolving]
  - Malaise [Recovering/Resolving]
